FAERS Safety Report 5635953-7 (Version None)
Quarter: 2008Q1

REPORT INFORMATION
  Report Type: 
  Country: None (occurrence: None)
  Receive Date: 20080224
  Receipt Date: 20080215
  Transmission Date: 20080703
  Serious: Yes (Other)
  Sender: FDA-Public Use
  Company Number: PHBS2008IT02079

PATIENT
  Age: 13 Year
  Sex: Male

DRUGS (3)
  1. LEDERFOLIN [Concomitant]
     Dosage: 7.5 MG, UNK
     Route: 048
     Dates: start: 19960615
  2. EXJADE [Suspect]
     Indication: BLOOD IRON ABNORMAL
     Dosage: 125 MG/DAY
     Route: 048
     Dates: start: 20071125, end: 20080121
  3. EXJADE [Suspect]
     Dosage: 500 MG/DAY
     Route: 048
     Dates: start: 20071125, end: 20080121

REACTIONS (3)
  - BETA 2 MICROGLOBULIN URINE INCREASED [None]
  - BLOOD CREATINE INCREASED [None]
  - RENAL TUBULAR DISORDER [None]
